FAERS Safety Report 4345171-0 (Version None)
Quarter: 2004Q2

REPORT INFORMATION
  Report Type: 
  Country: None (occurrence: None)
  Receive Date: 20040420
  Receipt Date: 20040406
  Transmission Date: 20050107
  Serious: Yes (Hospitalization)
  Sender: FDA-Public Use
  Company Number: 03P-163-0239619-00

PATIENT
  Age: 34 Year
  Sex: Male

DRUGS (4)
  1. NORVIR [Suspect]
     Indication: HIV INFECTION
     Dosage: 200 MG, 2 IN 1 D, PER ORAL
     Route: 048
     Dates: start: 20030918
  2. TIPRANAVIR [Concomitant]
  3. LAMIVUDINE [Concomitant]
  4. FUZEON [Concomitant]

REACTIONS (8)
  - CHOLECYSTITIS ACUTE [None]
  - CHOLESTASIS [None]
  - IMMUNE RECONSTITUTION SYNDROME [None]
  - LYMPHADENOPATHY [None]
  - NIGHT SWEATS [None]
  - PYREXIA [None]
  - SINUSITIS [None]
  - SPLENOMEGALY [None]
